FAERS Safety Report 11843696 (Version 2)
Quarter: 2015Q4

REPORT INFORMATION
  Report Type: Spontaneous
  Country: IT (occurrence: IT)
  Receive Date: 20151217
  Receipt Date: 20151230
  Transmission Date: 20160305
  Serious: Yes (Other)
  Sender: FDA-Public Use
  Company Number: IT-ACCORD-036235

PATIENT
  Age: 40 Year
  Sex: Male
  Weight: 66 kg

DRUGS (2)
  1. GEMCITABINE/GEMCITABINE HYDROCHLORIDE [Suspect]
     Active Substance: GEMCITABINE\GEMCITABINE HYDROCHLORIDE
     Indication: BLADDER CANCER
     Route: 042
     Dates: start: 20151002
  2. CISPLATIN HOSPIRA [Concomitant]
     Active Substance: CISPLATIN
     Dosage: STRENGTH: 100 MG/100 ML
     Route: 042
     Dates: start: 20151002, end: 20151113

REACTIONS (2)
  - Erythema [Recovered/Resolved]
  - Rash pruritic [Recovered/Resolved]

NARRATIVE: CASE EVENT DATE: 20151016
